FAERS Safety Report 25077910 (Version 1)
Quarter: 2025Q1

REPORT INFORMATION
  Report Type: Report from Study
  Country: TN (occurrence: TN)
  Receive Date: 20250314
  Receipt Date: 20250314
  Transmission Date: 20250409
  Serious: Yes (Death, Hospitalization, Other)
  Sender: ABBVIE
  Company Number: TN-ABBVIE-6172705

PATIENT
  Age: 40 Year
  Sex: Male

DRUGS (4)
  1. HUMIRA [Suspect]
     Active Substance: ADALIMUMAB
     Indication: Crohn^s disease
     Dosage: FORM STRENGTH: 40 MILLIGRAM?STOP DATE TEXT: 2019 APPROXIMATELY
     Route: 058
     Dates: start: 2018
  2. HUMIRA [Suspect]
     Active Substance: ADALIMUMAB
     Dosage: FORM STRENGTH: 40 MILLIGRAM
     Route: 058
     Dates: start: 20240928
  3. HUMIRA [Suspect]
     Active Substance: ADALIMUMAB
     Dosage: START DATE TEXT: 2014 APPROXIMATELY?STOP DATE TEXT: 2016 APPROXIMATELY?FORM STRENGTH: 40 MILLIGRAM
     Route: 058
  4. HUMIRA [Suspect]
     Active Substance: ADALIMUMAB
     Dosage: START DATE TEXT: 2020 APPROXIMATELY?FORM STRENGTH: 40 MILLIGRAM
     Route: 058
     Dates: end: 20240830

REACTIONS (2)
  - Cerebellar stroke [Fatal]
  - Vein rupture [Fatal]

NARRATIVE: CASE EVENT DATE: 20241101
